FAERS Safety Report 5060563-2 (Version None)
Quarter: 2006Q3

REPORT INFORMATION
  Report Type: 
  Country: None (occurrence: None)
  Receive Date: 20060721
  Receipt Date: 20060721
  Transmission Date: 20061208
  Serious: Yes (Other)
  Sender: FDA-Public Use
  Company Number: None

PATIENT
  Age: 11 Year
  Sex: Male

DRUGS (2)
  1. ABILIFY [Suspect]
     Indication: ATTENTION DEFICIT/HYPERACTIVITY DISORDER
     Dosage: 10MG PO QAM
     Route: 048
     Dates: start: 20060705, end: 20060710
  2. CLINDAMYCIN [Suspect]
     Indication: OPPOSITIONAL DEFIANT DISORDER
     Dosage: 150 MG PO TID
     Route: 048
     Dates: start: 20060708

REACTIONS (4)
  - DROOLING [None]
  - JOINT HYPEREXTENSION [None]
  - MUSCULOSKELETAL STIFFNESS [None]
  - TREMOR [None]
